FAERS Safety Report 24076497 (Version 3)
Quarter: 2024Q3

REPORT INFORMATION
  Report Type: Spontaneous
  Country: US (occurrence: None)
  Receive Date: 20240711
  Receipt Date: 20240913
  Transmission Date: 20241017
  Serious: No
  Sender: ASTRAZENECA
  Company Number: 2024A157176

PATIENT
  Sex: Male

DRUGS (1)
  1. BYDUREON BCISE [Suspect]
     Active Substance: EXENATIDE

REACTIONS (6)
  - Confusional state [Unknown]
  - Device use issue [Unknown]
  - Device issue [Unknown]
  - Product packaging quantity issue [Unknown]
  - Device malfunction [Unknown]
  - Device leakage [Unknown]
